FAERS Safety Report 23990832 (Version 7)
Quarter: 2024Q3

REPORT INFORMATION
  Report Type: Report from Study
  Country: CN (occurrence: CN)
  Receive Date: 20240619
  Receipt Date: 20240906
  Transmission Date: 20241017
  Serious: Yes (Death, Other)
  Sender: PFIZER
  Company Number: CN-TAKEDA-2023TUS086154

PATIENT
  Age: 66 Year
  Sex: Male
  Weight: 67.5 kg

DRUGS (1)
  1. BRENTUXIMAB VEDOTIN [Suspect]
     Active Substance: BRENTUXIMAB VEDOTIN
     Indication: Angiocentric lymphoma
     Dosage: 100 MG, CYCLIC ( Q2WEEKS)
     Route: 042
     Dates: start: 20230724, end: 20230811

REACTIONS (2)
  - Pneumonia [Fatal]
  - Off label use [Recovered/Resolved]

NARRATIVE: CASE EVENT DATE: 20230724
